FAERS Safety Report 19682024 (Version 1)
Quarter: 2021Q3

REPORT INFORMATION
  Report Type: Spontaneous
  Country: DE (occurrence: DE)
  Receive Date: 20210810
  Receipt Date: 20210810
  Transmission Date: 20211014
  Serious: Yes (Hospitalization)
  Sender: FDA-Public Use
  Company Number: DE-MYLANLABS-2021M1048822

PATIENT
  Age: 7 Year
  Sex: Female
  Weight: 47 kg

DRUGS (8)
  1. MYCOPHENOLATE MOFETIL MYLAN [Suspect]
     Active Substance: MYCOPHENOLATE MOFETIL
     Dosage: 750 MILLIGRAM, BID (750?0?750 MG)
     Route: 048
  2. BRIVIACT [Suspect]
     Active Substance: BRIVARACETAM
     Indication: PARTIAL SEIZURES
     Dosage: 100 MILLIGRAM, QD
     Route: 048
     Dates: start: 201812, end: 20190107
  3. OXCARBAZEPINE. [Concomitant]
     Active Substance: OXCARBAZEPINE
     Dosage: 300 MILLIGRAM, BID (300?0?300 MG)
  4. LAMOTRIGIN [Concomitant]
     Active Substance: LAMOTRIGINE
     Indication: PARTIAL SEIZURES
     Dosage: 1.5?0?2
     Route: 048
     Dates: start: 20150709
  5. OXCARBAZEPINE. [Concomitant]
     Active Substance: OXCARBAZEPINE
     Dosage: 75 MILLIGRAM, BID (75?0?75 MG)
  6. BUCCOLAM [Concomitant]
     Active Substance: MIDAZOLAM HYDROCHLORIDE
     Indication: SEIZURE
     Dosage: 10 MILLIGRAM
     Route: 002
     Dates: start: 20120307
  7. PREDNISOLON                        /00016201/ [Concomitant]
     Active Substance: PREDNISOLONE
     Indication: LIMBIC ENCEPHALITIS
     Dosage: 7.5 MILLIGRAM, QD
     Route: 048
     Dates: start: 20150709
  8. MYCOPHENOLATE MOFETIL MYLAN [Suspect]
     Active Substance: MYCOPHENOLATE MOFETIL
     Indication: LIMBIC ENCEPHALITIS
     Dosage: 1?0?1.5
     Route: 048
     Dates: start: 20181115

REACTIONS (1)
  - Seizure [Recovered/Resolved]
